FAERS Safety Report 5969368-9 (Version None)
Quarter: 2008Q4

REPORT INFORMATION
  Report Type: 
  Country: None (occurrence: None)
  Receive Date: 20081126
  Receipt Date: 20081118
  Transmission Date: 20090506
  Serious: Yes (Hospitalization, Other)
  Sender: FDA-Public Use
  Company Number: JP-PFIZER INC-2008084765

PATIENT
  Sex: Male
  Weight: 58 kg

DRUGS (2)
  1. CHAMPIX [Suspect]
     Indication: SMOKING CESSATION THERAPY
     Route: 048
     Dates: start: 20080705, end: 20080906
  2. CHAMPIX [Suspect]
     Indication: NICOTINE DEPENDENCE

REACTIONS (5)
  - DIZZINESS [None]
  - DIZZINESS POSTURAL [None]
  - GAIT DISTURBANCE [None]
  - HYPERTENSION [None]
  - MENIERE'S DISEASE [None]
